FAERS Safety Report 9527458 (Version 2)
Quarter: 2013Q4

REPORT INFORMATION
  Report Type: Spontaneous
  Country: US (occurrence: US)
  Receive Date: 20130917
  Receipt Date: 20131030
  Transmission Date: 20140711
  Serious: No
  Sender: FDA-Public Use
  Company Number: US-009507513-1309USA004849

PATIENT
  Age: 75 Year
  Sex: Male

DRUGS (8)
  1. COSOPT PF [Suspect]
     Indication: GLAUCOMA
     Dosage: 1 GTT, BID
     Route: 047
     Dates: start: 20130820, end: 20130827
  2. COSOPT PF [Suspect]
     Dosage: UNK
     Route: 047
     Dates: end: 2013
  3. ASPIRIN [Concomitant]
  4. TRIBENZOR [Concomitant]
  5. AMIODARONE [Concomitant]
  6. ATORVASTATIN [Concomitant]
  7. TERAZOSIN HYDROCHLORIDE [Concomitant]
  8. AVODART [Concomitant]

REACTIONS (2)
  - Burning sensation [Recovered/Resolved]
  - Eye irritation [Recovered/Resolved]
